FAERS Safety Report 5123090-X (Version None)
Quarter: 2006Q4

REPORT INFORMATION
  Report Type: 
  Country: None (occurrence: None)
  Receive Date: 20061009
  Receipt Date: 20060928
  Transmission Date: 20070319
  Serious: Yes (Other)
  Sender: FDA-Public Use
  Company Number: DE-AVENTIS-200612893DE

PATIENT
  Sex: Female

DRUGS (1)
  1. LANTUS [Suspect]
     Indication: DIABETES MELLITUS
     Dosage: DOSE: NOT REPORTED
     Route: 058

REACTIONS (1)
  - LOSS OF CONSCIOUSNESS [None]
